FAERS Safety Report 8830773 (Version 6)
Quarter: 2013Q2

REPORT INFORMATION
  Report Type: Spontaneous
  Country: US (occurrence: US)
  Receive Date: 20121009
  Receipt Date: 20130510
  Transmission Date: 20140414
  Serious: Yes (Hospitalization, Other)
  Sender: FDA-Public Use
  Company Number: US-PFIZER INC-2012247287

PATIENT
  Age: 53 Year
  Sex: Male
  Weight: 135 kg

DRUGS (16)
  1. SUTENT [Suspect]
     Indication: RENAL CELL CARCINOMA STAGE IV
     Dosage: 50 MG, 1X/DAY, 3 WEEKS
     Dates: start: 201203, end: 201204
  2. SUTENT [Suspect]
     Indication: RENAL CANCER METASTATIC
     Dosage: 50 MG, DAILY, CYCLIC
     Route: 048
     Dates: start: 20120501, end: 20120521
  3. SUTENT [Suspect]
     Dosage: 50 MG, DAILY, CYCLIC
     Route: 048
     Dates: start: 20120702
  4. SUTENT [Suspect]
     Dosage: 50 MG, DAILY
     Dates: start: 201203, end: 201204
  5. SUTENT [Suspect]
     Dosage: 4 WEEKS ON 4 DAYS
     Dates: start: 20120719, end: 20120723
  6. SUTENT [Suspect]
     Dosage: 2 WEEKS OFF 28 DAYS
     Dates: start: 20120801
  7. AMLODIPINE BESILATE [Suspect]
     Indication: HYPERTENSION
     Dosage: 25 MG, DAILY
     Dates: end: 2012
  8. LISINOPRIL [Suspect]
     Indication: HYPERTENSION
     Dosage: 25 MG, DAILY
     Dates: end: 2012
  9. HYDROCHLOROTHIAZIDE/LISINOPRIL [Suspect]
     Dosage: 1 TAB (20/25), DAILY
     Route: 048
     Dates: start: 20120327, end: 20120921
  10. IMODIUM [Concomitant]
     Dosage: AS NEEDED
  11. TYLENOL [Concomitant]
     Dosage: AS NEEDED
  12. NEURONTIN [Concomitant]
     Dosage: UNK
  13. ZYRTEC [Concomitant]
     Dosage: UNK
  14. HYDROCHLOROTHIAZIDE [Concomitant]
     Dosage: UNK
  15. BENICAR [Concomitant]
     Dosage: UNK
  16. POTASSIUM GLUCONATE [Concomitant]
     Dosage: UNK, AS DIRECTED

REACTIONS (17)
  - Cardiac failure congestive [Unknown]
  - Pulmonary oedema [Unknown]
  - Dyspnoea [Not Recovered/Not Resolved]
  - Cough [Not Recovered/Not Resolved]
  - Pain [Not Recovered/Not Resolved]
  - Dizziness [Not Recovered/Not Resolved]
  - Pain in extremity [Not Recovered/Not Resolved]
  - Oedema peripheral [Recovered/Resolved]
  - Rash [Recovered/Resolved]
  - Palmar-plantar erythrodysaesthesia syndrome [Not Recovered/Not Resolved]
  - Heart rate increased [Unknown]
  - Blood pressure increased [Recovered/Resolved]
  - Haemoptysis [Unknown]
  - Stomatitis [Recovered/Resolved]
  - Abdominal pain [Recovered/Resolved]
  - Muscle spasms [Unknown]
  - Tenderness [Unknown]
